FAERS Safety Report 19241952 (Version 1)
Quarter: 2021Q2

REPORT INFORMATION
  Report Type: Spontaneous
  Country: FR (occurrence: FR)
  Receive Date: 20210510
  Receipt Date: 20210510
  Transmission Date: 20210717
  Serious: Yes (Death)
  Sender: FDA-Public Use
  Company Number: FR-MYLANLABS-2021M1027222

PATIENT
  Age: 79 Year
  Sex: Male

DRUGS (1)
  1. ACICLOVIR MYLAN [Suspect]
     Active Substance: ACYCLOVIR
     Indication: PRODUCT USED FOR UNKNOWN INDICATION
     Dosage: 3000 MILLIGRAM

REACTIONS (3)
  - Product prescribing error [Unknown]
  - Incorrect dose administered [Unknown]
  - Accidental overdose [Fatal]
